FAERS Safety Report 4981628-7 (Version None)
Quarter: 2006Q2

REPORT INFORMATION
  Report Type: 
  Country: None (occurrence: None)
  Receive Date: 20060425
  Receipt Date: 20060421
  Transmission Date: 20061013
  Serious: Yes (Other)
  Sender: FDA-Public Use
  Company Number: JP-ABBOTT-06P-087-0331415-00

PATIENT
  Age: 59 Year
  Sex: Female

DRUGS (13)
  1. SEVOFLURANE [Suspect]
     Indication: MAINTENANCE OF ANAESTHESIA
     Dosage: 0.5-2%
     Route: 055
  2. PROPOFOL [Suspect]
     Indication: INDUCTION OF ANAESTHESIA
     Route: 042
  3. CEFAZOLIN SODIUM [Suspect]
     Indication: DRUG USE FOR UNKNOWN INDICATION
     Route: 042
  4. CEFAZOLIN SODIUM [Suspect]
     Route: 042
  5. MEPIVACAINE HCL [Suspect]
     Indication: DRUG USE FOR UNKNOWN INDICATION
     Route: 008
  6. VECURONIUM BROMIDE [Concomitant]
     Indication: INTUBATION
  7. OXYGEN [Concomitant]
     Indication: MAINTENANCE OF ANAESTHESIA
     Dosage: 1 L/MINUTE
     Route: 055
  8. AIR [Concomitant]
     Indication: MAINTENANCE OF ANAESTHESIA
     Dosage: 3L/MIN
     Route: 055
  9. RINGER'S [Concomitant]
     Indication: DRUG USE FOR UNKNOWN INDICATION
  10. SODIUM CHLORIDE [Concomitant]
     Indication: DRUG USE FOR UNKNOWN INDICATION
  11. SODIUM CHLORIDE [Concomitant]
  12. INTRAVENOUS FLUID [Concomitant]
     Indication: DRUG USE FOR UNKNOWN INDICATION
     Dosage: 100 ML/HR
     Route: 042
  13. INTRAVENOUS FLUID [Concomitant]

REACTIONS (1)
  - POLYURIA [None]
